FAERS Safety Report 18086408 (Version 1)
Quarter: 2020Q3

REPORT INFORMATION
  Report Type: Spontaneous
  Country: US (occurrence: US)
  Receive Date: 20200728
  Receipt Date: 20200728
  Transmission Date: 20201103
  Serious: No
  Sender: FDA-Public Use
  Company Number: US-JNJFOC-20200735473

PATIENT

DRUGS (3)
  1. ALOE                               /01332701/ [Concomitant]
     Active Substance: ALOE
     Indication: BURNS THIRD DEGREE
     Route: 065
  2. NEUTROGENA AGE SHIELD FACE SUNBLOCK [Concomitant]
     Indication: PROPHYLAXIS
     Route: 061
  3. TYLENOL [Suspect]
     Active Substance: ACETAMINOPHEN
     Indication: BURNS THIRD DEGREE
     Route: 065
     Dates: start: 202007

REACTIONS (1)
  - Product use in unapproved indication [Unknown]

NARRATIVE: CASE EVENT DATE: 202007
